FAERS Safety Report 5089930-8 (Version None)
Quarter: 2006Q3

REPORT INFORMATION
  Report Type: 
  Country: None (occurrence: None)
  Receive Date: 20060823
  Receipt Date: 20060807
  Transmission Date: 20061208
  Serious: Yes (Other)
  Sender: FDA-Public Use
  Company Number: DSA_28575_2006

PATIENT
  Age: 76 Year
  Sex: Female

DRUGS (8)
  1. ATIVAN [Suspect]
     Indication: ANXIETY
     Dosage: 0.5 MG QID PO
     Route: 048
  2. LEXAPRO [Suspect]
     Indication: ANXIETY
     Dosage: 5 MG ONCE PO
     Route: 048
     Dates: start: 20060329, end: 20060329
  3. CARDIZEM [Concomitant]
  4. DYAZIDE [Concomitant]
  5. TENORMIN [Concomitant]
  6. VITAMIN E [Concomitant]
  7. CALCIUM GLUCONATE [Concomitant]
  8. ASPIRIN [Concomitant]

REACTIONS (13)
  - ANXIETY [None]
  - ASTHENIA [None]
  - BLOOD PRESSURE INCREASED [None]
  - CHEST DISCOMFORT [None]
  - DRUG WITHDRAWAL SYNDROME [None]
  - DRY MOUTH [None]
  - HEADACHE [None]
  - INAPPROPRIATE SCHEDULE OF DRUG ADMINISTRATION [None]
  - INSOMNIA [None]
  - NAUSEA [None]
  - PALPITATIONS [None]
  - SENSATION OF FOREIGN BODY [None]
  - TREATMENT NONCOMPLIANCE [None]
